FAERS Safety Report 6055924-9 (Version None)
Quarter: 2009Q1

REPORT INFORMATION
  Report Type: 
  Country: None (occurrence: None)
  Receive Date: 20090126
  Receipt Date: 20090115
  Transmission Date: 20090719
  Serious: Yes (Hospitalization)
  Sender: FDA-Public Use
  Company Number: FRP09000016

PATIENT
  Age: 72 Year
  Sex: Female

DRUGS (11)
  1. ACTONEL [Suspect]
     Indication: OSTEOPOROSIS
     Dosage: 35 MG, 1 /WEEK, ORAL
     Route: 048
     Dates: start: 20070801, end: 20080826
  2. PAROXETINE HYDROCHLORIDE [Concomitant]
  3. MYLASTAN      (TETRAZEPAM) [Concomitant]
  4. ZOLPIDEM TARTRATE [Concomitant]
  5. TANAKAN (GINGKO BILOBA EXTRACT) [Concomitant]
  6. XYZALL (LEVOCETIRIZINE) [Concomitant]
  7. OROCAL D3 (CALCIUM CARBONATE, COLECALCIFEROL) [Concomitant]
  8. NAFTIDROFURYL (NAFTIDOROFURYL) [Concomitant]
  9. PRAVASTATIN [Concomitant]
  10. BIPRETERAX (INDAPAMIDE, PERINDOPRIL ERBUMINE) [Concomitant]
  11. PLAVIX [Concomitant]

REACTIONS (7)
  - ABDOMINAL PAIN UPPER [None]
  - DEHYDRATION [None]
  - DYSPHAGIA [None]
  - HAEMATEMESIS [None]
  - MALNUTRITION [None]
  - NECROTISING OESOPHAGITIS [None]
  - VOMITING [None]
